FAERS Safety Report 8392502-0 (Version None)
Quarter: 2012Q2

REPORT INFORMATION
  Report Type: 
  Country: None (occurrence: None)
  Receive Date: 20120529
  Receipt Date: 20120425
  Transmission Date: 20120825
  Serious: Yes (Hospitalization)
  Sender: FDA-Public Use
  Company Number: US-ROCHE-1063140

PATIENT
  Sex: Female

DRUGS (12)
  1. CALCITRIOL [Concomitant]
     Dates: start: 20111222
  2. TYLENOL PM [Concomitant]
     Dates: start: 20110601
  3. AVASTIN [Suspect]
     Indication: RENAL CELL CARCINOMA
     Dates: start: 20120322
  4. ALLOPURINOL [Concomitant]
     Dates: start: 20111228
  5. LOVENOX [Concomitant]
     Dates: start: 20111220
  6. CALCIUM CARBONATE [Concomitant]
     Dates: start: 20111222
  7. OMEPRAZOLE [Concomitant]
     Dates: start: 20120111
  8. SYNTHROID [Concomitant]
     Dates: start: 20060101
  9. MDX-1106 (ANTI-PD-1 MAB) [Suspect]
     Indication: RENAL CELL CARCINOMA
     Route: 042
     Dates: start: 20120110, end: 20120131
  10. AXITINIB [Suspect]
     Indication: RENAL CELL CARCINOMA
     Route: 048
     Dates: start: 20120303, end: 20120313
  11. ZANTAC [Concomitant]
     Dates: start: 20120128
  12. VYTORIN [Concomitant]
     Dates: start: 20080101

REACTIONS (8)
  - BACK PAIN [None]
  - TOXICITY TO VARIOUS AGENTS [None]
  - BLOOD ALKALINE PHOSPHATASE INCREASED [None]
  - HYPONATRAEMIA [None]
  - ASPARTATE AMINOTRANSFERASE INCREASED [None]
  - ALANINE AMINOTRANSFERASE INCREASED [None]
  - RENAL FAILURE ACUTE [None]
  - BLOOD BILIRUBIN INCREASED [None]
